FAERS Safety Report 23073618 (Version 17)
Quarter: 2024Q3

REPORT INFORMATION
  Report Type: Report from Study
  Country: US (occurrence: US)
  Receive Date: 20231017
  Receipt Date: 20240919
  Transmission Date: 20241017
  Serious: Yes (Hospitalization, Other)
  Sender: ABBVIE
  Company Number: US-ABBVIE-5366281

PATIENT
  Sex: Female

DRUGS (12)
  1. VENCLEXTA [Suspect]
     Active Substance: VENETOCLAX
     Indication: Acute myeloid leukaemia
     Dosage: FORM STRENGTH WAS 100 MILLIGRAM?100 MG ON DAY 1
     Route: 048
     Dates: start: 20230807, end: 20230807
  2. VENCLEXTA [Suspect]
     Active Substance: VENETOCLAX
     Indication: Acute myeloid leukaemia
     Dosage: 2X100 MG ON DAY 2?FORM STRENGTH 100 MILLIGRAM
     Route: 048
     Dates: start: 20230808, end: 20230808
  3. VENCLEXTA [Suspect]
     Active Substance: VENETOCLAX
     Indication: Acute myeloid leukaemia
     Dosage: 3X100 MG ON DAY 3?FORM STRENGTH 100 MILLIGRAM
     Route: 048
     Dates: start: 20230809, end: 20230809
  4. VENCLEXTA [Suspect]
     Active Substance: VENETOCLAX
     Indication: Acute myeloid leukaemia
     Dosage: FORM STRENGTH WAS 100 MILLIGRAM ?3X100 MG TABLETS BY MOUTH ONCE A DAY
     Route: 048
     Dates: start: 20231107, end: 20231107
  5. VENCLEXTA [Suspect]
     Active Substance: VENETOCLAX
     Indication: Acute myeloid leukaemia
     Dosage: FORM STRENGTH 100 MILLIGRAM,?LAST ADMIN DATE 2024
     Route: 048
     Dates: start: 20230810
  6. VENCLEXTA [Suspect]
     Active Substance: VENETOCLAX
     Indication: Acute myeloid leukaemia
     Dosage: FORM STRENGTH 100 MILLIGRAM,
     Route: 048
     Dates: start: 20240305, end: 20240305
  7. VENCLEXTA [Suspect]
     Active Substance: VENETOCLAX
     Indication: Acute myeloid leukaemia
     Dosage: LAST ADMIN DATE 2024
     Route: 048
     Dates: start: 20240506
  8. VENCLEXTA [Suspect]
     Active Substance: VENETOCLAX
     Indication: Acute myeloid leukaemia
     Dosage: FORM STRENGTH 100 MILLIGRAM,
     Route: 048
  9. VENCLEXTA [Suspect]
     Active Substance: VENETOCLAX
     Indication: Acute myeloid leukaemia
     Dosage: FORM STRENGTH 100 MILLIGRAM
     Route: 048
     Dates: start: 20240708
  10. MIRALAX [Concomitant]
     Active Substance: POLYETHYLENE GLYCOL 3350
     Indication: Constipation
  11. NEULASTA [Suspect]
     Active Substance: PEGFILGRASTIM
     Indication: Product used for unknown indication
     Dosage: ON BODY INJECTION
     Route: 065
  12. IRON [Concomitant]
     Active Substance: IRON
     Indication: Product used for unknown indication
     Dosage: FORM IS LIQUID IRON ?44 MILLIGRAM

REACTIONS (42)
  - Neutropenic infection [Recovered/Resolved]
  - Heart rate irregular [Unknown]
  - Vomiting [Recovered/Resolved]
  - Constipation [Recovering/Resolving]
  - Taste disorder [Not Recovered/Not Resolved]
  - White blood cell count decreased [Recovering/Resolving]
  - Pyrexia [Unknown]
  - White blood cell count abnormal [Recovered/Resolved]
  - Dermatitis contact [Unknown]
  - Red blood cell count decreased [Not Recovered/Not Resolved]
  - Parosmia [Not Recovered/Not Resolved]
  - Dizziness postural [Recovered/Resolved]
  - Bronchitis [Not Recovered/Not Resolved]
  - Full blood count abnormal [Unknown]
  - Band neutrophil count increased [Not Recovered/Not Resolved]
  - Blast cells present [Unknown]
  - Hepatic enzyme increased [Not Recovered/Not Resolved]
  - Weight decreased [Not Recovered/Not Resolved]
  - Delirium [Unknown]
  - Dyspnoea [Not Recovered/Not Resolved]
  - Haemoglobin decreased [Recovering/Resolving]
  - Haematocrit decreased [Unknown]
  - Feeling cold [Recovered/Resolved]
  - Crying [Recovered/Resolved]
  - Fatigue [Not Recovered/Not Resolved]
  - Full blood count decreased [Unknown]
  - Cardiac flutter [Unknown]
  - Increased appetite [Not Recovered/Not Resolved]
  - Complication of device insertion [Unknown]
  - Bone marrow disorder [Unknown]
  - Neutrophil count decreased [Not Recovered/Not Resolved]
  - Blood potassium decreased [Recovering/Resolving]
  - Pruritus [Not Recovered/Not Resolved]
  - Red blood cell count decreased [Not Recovered/Not Resolved]
  - Necrosis [Unknown]
  - Platelet count decreased [Not Recovered/Not Resolved]
  - Therapeutic product effect decreased [Unknown]
  - Serum ferritin increased [Not Recovered/Not Resolved]
  - COVID-19 [Unknown]
  - Nausea [Not Recovered/Not Resolved]
  - Nausea [Unknown]
  - Vomiting [Unknown]

NARRATIVE: CASE EVENT DATE: 20230101
